FAERS Safety Report 15984809 (Version 1)
Quarter: 2019Q1

REPORT INFORMATION
  Report Type: Spontaneous
  Country: US (occurrence: US)
  Receive Date: 20190219
  Receipt Date: 20190219
  Transmission Date: 20190418
  Serious: No
  Sender: FDA-Public Use
  Company Number: None

PATIENT
  Age: 3 Year
  Sex: Male
  Weight: 14.4 kg

DRUGS (1)
  1. OFLOXACIN. [Suspect]
     Active Substance: OFLOXACIN
     Indication: CONJUNCTIVITIS BACTERIAL
     Dosage: ?          QUANTITY:1 EYE SOLUTION;?
     Route: 047
     Dates: start: 20190218, end: 20190218

REACTIONS (1)
  - Urticaria [None]

NARRATIVE: CASE EVENT DATE: 20190218
